FAERS Safety Report 7938070-6 (Version None)
Quarter: 2011Q4

REPORT INFORMATION
  Report Type: 
  Country: None (occurrence: None)
  Receive Date: 20111123
  Receipt Date: 20111118
  Transmission Date: 20120403
  Serious: Yes (Other)
  Sender: FDA-Public Use
  Company Number: US-BAYER-2011-038672

PATIENT
  Sex: Female

DRUGS (34)
  1. DAPSONE [Concomitant]
  2. NEURONTIN [Concomitant]
  3. ALLOPURINOL [Concomitant]
  4. EPOGEN [Concomitant]
  5. GADOLINIUM IN UNSPECIFIED DRUG [Suspect]
     Indication: NUCLEAR MAGNETIC RESONANCE IMAGING BRAIN
     Dosage: UNK
     Dates: start: 20020717, end: 20020717
  6. GADOLINIUM IN UNSPECIFIED DRUG [Suspect]
     Indication: NUCLEAR MAGNETIC RESONANCE IMAGING
  7. PROGRAF [Concomitant]
  8. GANCICLOVIR [Concomitant]
  9. ATENOLOL [Concomitant]
  10. ROCALTROL [Concomitant]
  11. HYDRALAZINE HCL [Concomitant]
  12. PLAVIX [Concomitant]
  13. PREDNISONE TAB [Concomitant]
  14. DAPSONE [Concomitant]
  15. LEVOXYL [Concomitant]
  16. CARDURA [Concomitant]
  17. FUROSEMIDE [Concomitant]
  18. PROCRIT [Concomitant]
  19. PREDNISONE TAB [Concomitant]
  20. LAMICTAL [Concomitant]
  21. COLCHICINE [Concomitant]
  22. GADOLINIUM IN UNSPECIFIED DRUG [Suspect]
     Indication: NUCLEAR MAGNETIC RESONANCE IMAGING ABDOMINAL
  23. AMIODARONE HCL [Concomitant]
  24. CYTOVENE [Concomitant]
  25. MAGNEVIST [Suspect]
     Indication: VENOGRAM
     Dosage: UNK
     Dates: start: 20051207, end: 20051207
  26. PROGRAF [Concomitant]
  27. NEXIUM [Concomitant]
  28. CLONIDINE [Concomitant]
  29. MAGNEVIST [Suspect]
     Indication: NUCLEAR MAGNETIC RESONANCE IMAGING
     Dosage: UNK
     Dates: start: 20040405, end: 20040405
  30. MAGNEVIST [Suspect]
     Indication: ANGIOGRAM
     Dosage: UNK
     Dates: start: 20040517, end: 20040517
  31. MAGNEVIST [Suspect]
  32. AMIODARONE HCL [Concomitant]
  33. RENAGEL [Concomitant]
  34. CARDIZEM [Concomitant]

REACTIONS (38)
  - MUSCULAR WEAKNESS [None]
  - SKIN SWELLING [None]
  - OEDEMA [None]
  - ANXIETY [None]
  - LOCALISED INTRAABDOMINAL FLUID COLLECTION [None]
  - BACK PAIN [None]
  - INSOMNIA [None]
  - RASH PAPULAR [None]
  - SKIN HYPOPIGMENTATION [None]
  - HEPATIC CIRRHOSIS [None]
  - ILIAC ARTERY STENOSIS [None]
  - NEUROPATHY PERIPHERAL [None]
  - SKIN TIGHTNESS [None]
  - SKIN INDURATION [None]
  - DRY SKIN [None]
  - HEPATOMEGALY [None]
  - PAIN IN EXTREMITY [None]
  - OEDEMA PERIPHERAL [None]
  - BONE PAIN [None]
  - SKIN DISCOLOURATION [None]
  - SKIN HYPERTROPHY [None]
  - LIVER TRANSPLANT [None]
  - MUSCULOSKELETAL PAIN [None]
  - SKIN DISORDER [None]
  - PANCREATIC CYST [None]
  - HEPATIC ARTERY STENOSIS [None]
  - PELVIC HAEMATOMA [None]
  - NEPHROGENIC SYSTEMIC FIBROSIS [None]
  - PARAESTHESIA [None]
  - SKIN PLAQUE [None]
  - EMOTIONAL DISORDER [None]
  - INJURY [None]
  - ARTHRALGIA [None]
  - RASH ERYTHEMATOUS [None]
  - HEPATITIS [None]
  - HAEMODIALYSIS [None]
  - PAIN [None]
  - SKIN HYPERPIGMENTATION [None]
